FAERS Safety Report 22160133 (Version 4)
Quarter: 2023Q2

REPORT INFORMATION
  Report Type: Report from Study
  Country: IT (occurrence: None)
  Receive Date: 20230331
  Receipt Date: 20230524
  Transmission Date: 20230722
  Serious: Yes (Hospitalization)
  Sender: FDA-Public Use
  Company Number: IT-Eisai Medical Research-EC-2023-137232

PATIENT
  Age: 75 Year
  Sex: Female
  Weight: 54 kg

DRUGS (23)
  1. LENVATINIB [Suspect]
     Active Substance: LENVATINIB
     Indication: Oesophageal cancer metastatic
     Route: 048
     Dates: start: 20230315, end: 20230322
  2. LENVATINIB [Suspect]
     Active Substance: LENVATINIB
     Route: 048
     Dates: start: 20230424
  3. PEMBROLIZUMAB [Suspect]
     Active Substance: PEMBROLIZUMAB
     Indication: Oesophageal cancer metastatic
     Route: 041
     Dates: start: 20230315, end: 20230315
  4. PEMBROLIZUMAB [Suspect]
     Active Substance: PEMBROLIZUMAB
     Route: 041
     Dates: start: 20230424
  5. FLUOROURACIL [Suspect]
     Active Substance: FLUOROURACIL
     Indication: Oesophageal cancer metastatic
     Route: 040
     Dates: start: 20230315, end: 20230315
  6. FLUOROURACIL [Suspect]
     Active Substance: FLUOROURACIL
     Route: 042
     Dates: start: 20230315, end: 20230317
  7. FLUOROURACIL [Suspect]
     Active Substance: FLUOROURACIL
     Route: 040
     Dates: start: 20230424
  8. FLUOROURACIL [Suspect]
     Active Substance: FLUOROURACIL
     Route: 042
     Dates: start: 20230424
  9. OXALIPLATIN [Suspect]
     Active Substance: OXALIPLATIN
     Indication: Oesophageal cancer metastatic
     Route: 042
     Dates: start: 20230315, end: 20230315
  10. OXALIPLATIN [Suspect]
     Active Substance: OXALIPLATIN
     Route: 042
     Dates: start: 20230424
  11. LEUCOVORIN [Suspect]
     Active Substance: LEUCOVORIN
     Indication: Oesophageal cancer metastatic
     Route: 042
     Dates: start: 20230315, end: 20230315
  12. LEUCOVORIN [Suspect]
     Active Substance: LEUCOVORIN
     Route: 042
     Dates: start: 20230424
  13. RAMIPRIL [Concomitant]
     Active Substance: RAMIPRIL
     Dates: start: 201502
  14. PANTOPRAZOLE [Concomitant]
     Active Substance: PANTOPRAZOLE
     Dates: start: 20210920, end: 20230505
  15. CHOLECALCIFEROL [Concomitant]
     Active Substance: CHOLECALCIFEROL
     Dates: start: 20020124, end: 20230407
  16. LEVOTHYROXINE SODIUM [Concomitant]
     Active Substance: LEVOTHYROXINE SODIUM
     Dates: start: 20140120
  17. PAROXETINE [Concomitant]
     Active Substance: PAROXETINE
     Dates: start: 20020124
  18. CALCIO BASE DUPOMAR [Concomitant]
     Dosage: WAFER
     Dates: start: 20220517, end: 20230321
  19. ACLASTA [Concomitant]
     Active Substance: ZOLEDRONIC ACID
     Dates: start: 202205
  20. ANORO ELLIPTA [Concomitant]
     Active Substance: UMECLIDINIUM BROMIDE\VILANTEROL TRIFENATATE
     Dates: start: 20220606, end: 20230326
  21. ISMIGEN [BACTERIA LYSATE NOS] [Concomitant]
     Dates: start: 20221004, end: 20230322
  22. DEXAMETHASONE [Concomitant]
     Active Substance: DEXAMETHASONE
     Dates: start: 20230315, end: 20230315
  23. ONDANSETRON [Concomitant]
     Active Substance: ONDANSETRON
     Dates: start: 20230315, end: 20230315

REACTIONS (1)
  - Pneumonitis [Not Recovered/Not Resolved]

NARRATIVE: CASE EVENT DATE: 20230323
